FAERS Safety Report 5900848-8 (Version None)
Quarter: 2008Q3

REPORT INFORMATION
  Report Type: 
  Country: None (occurrence: None)
  Receive Date: 20080924
  Receipt Date: 20080909
  Transmission Date: 20090109
  Serious: Yes (Other)
  Sender: FDA-Public Use
  Company Number: JPI-P-004666

PATIENT
  Age: 86 Year
  Sex: Female

DRUGS (9)
  1. LUVOX [Suspect]
     Indication: DEPRESSION
     Dosage: (25 MG, 1 D) , ORAL
     Route: 048
     Dates: start: 20080716, end: 20080827
  2. IMIDAPRIL HYDROCHLORIDE (IMIDAPRIL HYDROCHLORIDE) [Concomitant]
  3. CARVEDILOL [Concomitant]
  4. OMEPRAZOLE [Concomitant]
  5. BROTIZOLAM (BROTIZOLAM) [Concomitant]
  6. WARFARIN SODIUM [Concomitant]
  7. LOXOPROFEN SODIUM (LOXOPROFEN SODIUM) [Concomitant]
  8. PANTETHINE (PANTETHINE) [Concomitant]
  9. MAGNESIUM OXIDE (MAGNESIUM OXIDE) [Concomitant]

REACTIONS (1)
  - INAPPROPRIATE ANTIDIURETIC HORMONE SECRETION [None]
